FAERS Safety Report 12692281 (Version 1)
Quarter: 2016Q3

REPORT INFORMATION
  Report Type: Spontaneous
  Country: US (occurrence: US)
  Receive Date: 20160828
  Receipt Date: 20160828
  Transmission Date: 20161109
  Serious: Yes (Hospitalization)
  Sender: FDA-Public Use
  Company Number: US-BEH-2016072918

PATIENT
  Age: 72 Year
  Sex: Male
  Weight: 67.89 kg

DRUGS (23)
  1. CELEBREX [Concomitant]
     Active Substance: CELECOXIB
  2. ALBUTEROL                          /00139501/ [Concomitant]
     Active Substance: ALBUTEROL
  3. EFFEXOR [Concomitant]
     Active Substance: VENLAFAXINE HYDROCHLORIDE
  4. HIZENTRA [Suspect]
     Active Substance: HUMAN IMMUNOGLOBULIN G
     Indication: IMMUNODEFICIENCY COMMON VARIABLE
     Dosage: UNK
     Route: 058
     Dates: start: 20110531
  5. HIZENTRA [Suspect]
     Active Substance: HUMAN IMMUNOGLOBULIN G
     Dosage: 30 G, QW
     Route: 058
  6. TAMIFLU [Concomitant]
     Active Substance: OSELTAMIVIR PHOSPHATE
  7. DHEA [Concomitant]
     Active Substance: PRASTERONE
  8. VITAMIN B [Concomitant]
     Active Substance: VITAMIN B
  9. SYNTHROID [Concomitant]
     Active Substance: LEVOTHYROXINE SODIUM
  10. POTASSIUM CITRATE. [Concomitant]
     Active Substance: POTASSIUM CITRATE
  11. JANUMET [Concomitant]
     Active Substance: METFORMIN HYDROCHLORIDE\SITAGLIPTIN PHOSPHATE
  12. ACETAMINOPHEN. [Concomitant]
     Active Substance: ACETAMINOPHEN
  13. ALLOPURINOL. [Concomitant]
     Active Substance: ALLOPURINOL
  14. DIPHENHYDRAMINE. [Concomitant]
     Active Substance: DIPHENHYDRAMINE
  15. TRICOR                             /00090101/ [Concomitant]
     Active Substance: ADENOSINE
  16. HYDROCHLOROTHIAZIDE. [Concomitant]
     Active Substance: HYDROCHLOROTHIAZIDE
  17. ASPIRIN. [Concomitant]
     Active Substance: ASPIRIN
  18. EPIPEN [Concomitant]
     Active Substance: EPINEPHRINE
  19. HIZENTRA [Suspect]
     Active Substance: HUMAN IMMUNOGLOBULIN G
     Indication: ASTHMA
     Dosage: 30 G, QW
     Route: 058
  20. LMX                                /00033401/ [Concomitant]
  21. GEMFIBROZIL. [Concomitant]
     Active Substance: GEMFIBROZIL
  22. MACROBID [Concomitant]
     Active Substance: NITROFURANTOIN\NITROFURANTOIN MONOHYDRATE
  23. VITAMIN D3 [Concomitant]
     Active Substance: CHOLECALCIFEROL

REACTIONS (2)
  - Catheterisation cardiac [Unknown]
  - Stent placement [Unknown]

NARRATIVE: CASE EVENT DATE: 20160822
